APPROVED DRUG PRODUCT: INDOMETHACIN
Active Ingredient: INDOMETHACIN
Strength: 50MG
Dosage Form/Route: CAPSULE;ORAL
Application: N018690 | Product #002
Applicant: WATSON LABORATORIES INC
Approved: Jul 31, 1984 | RLD: No | RS: No | Type: DISCN